FAERS Safety Report 6085822-6 (Version None)
Quarter: 2009Q1

REPORT INFORMATION
  Report Type: 
  Country: None (occurrence: None)
  Receive Date: 20090220
  Receipt Date: 20090216
  Transmission Date: 20090719
  Serious: Yes (Other)
  Sender: FDA-Public Use
  Company Number: A0765078A

PATIENT
  Age: 68 Year
  Sex: Female
  Weight: 68.2 kg

DRUGS (7)
  1. ADVAIR HFA [Suspect]
     Indication: DRUG USE FOR UNKNOWN INDICATION
     Dosage: 1PUFF TWICE PER DAY
     Route: 055
     Dates: start: 20090101, end: 20090101
  2. UNKNOWN [Concomitant]
  3. ALBUTEROL [Concomitant]
     Dosage: 2PUFF AS REQUIRED
     Route: 055
     Dates: start: 20081201
  4. ALPRAZOLAM [Concomitant]
     Route: 048
  5. COMBIVENT [Concomitant]
     Dosage: 2PUFF PER DAY
     Route: 055
     Dates: start: 20090201
  6. FLOVENT [Concomitant]
     Dosage: 1PUFF TWICE PER DAY
     Route: 055
     Dates: start: 20090201
  7. ZYRTEC [Concomitant]
     Dosage: 1TAB PER DAY
     Route: 048
     Dates: start: 20090101

REACTIONS (2)
  - CEREBROVASCULAR ACCIDENT [None]
  - FATIGUE [None]
